FAERS Safety Report 7578269-4 (Version None)
Quarter: 2011Q2

REPORT INFORMATION
  Report Type: 
  Country: None (occurrence: None)
  Receive Date: 20110628
  Receipt Date: 20110614
  Transmission Date: 20111010
  Serious: Yes (Other)
  Sender: FDA-Public Use
  Company Number: CA-JNJFOC-20110607768

PATIENT
  Sex: Female
  Weight: 100 kg

DRUGS (1)
  1. REMICADE [Suspect]
     Indication: PRODUCT USED FOR UNKNOWN INDICATION
     Dosage: (AE REPORT FORM THERAPY START DATE IS LISTED AS 2001 AND ALSO REFERRED TO AS 2011)
     Route: 042
     Dates: start: 20110101

REACTIONS (2)
  - RETINITIS [None]
  - CYSTITIS [None]
